FAERS Safety Report 4690112-X (Version None)
Quarter: 2005Q2

REPORT INFORMATION
  Report Type: 
  Country: None (occurrence: None)
  Receive Date: 20050613
  Receipt Date: 20050603
  Transmission Date: 20051028
  Serious: Yes (Other)
  Sender: FDA-Public Use
  Company Number: BRO-008688

PATIENT
  Age: 72 Year
  Sex: Male

DRUGS (3)
  1. IOPAMIDOL-300 [Suspect]
     Indication: COMPUTERISED TOMOGRAM
     Dosage: 100 ML, IV
     Route: 042
     Dates: start: 20050511, end: 20050511
  2. IOPAMIDOL-300 [Suspect]
     Indication: GASTRIC ULCER
     Dosage: 100 ML, IV
     Route: 042
     Dates: start: 20050511, end: 20050511
  3. IOPAMIDOL-300 [Suspect]
     Indication: HEPATITIS C
     Dosage: 100 ML, IV
     Route: 042
     Dates: start: 20050511, end: 20050511

REACTIONS (4)
  - BLOOD PRESSURE SYSTOLIC DECREASED [None]
  - LIVER DISORDER [None]
  - SEPSIS [None]
  - SHOCK [None]
